FAERS Safety Report 14214127 (Version 4)
Quarter: 2019Q2

REPORT INFORMATION
  Report Type: Report from Study
  Country: GB (occurrence: GB)
  Receive Date: 20171122
  Receipt Date: 20190614
  Transmission Date: 20190711
  Serious: Yes (Hospitalization)
  Sender: FDA-Public Use
  Company Number: GB-PFIZER INC-2017489360

PATIENT
  Age: 37 Year
  Sex: Female
  Weight: 52.2 kg

DRUGS (3)
  1. HYDROXYCHLOROQUINE [Suspect]
     Active Substance: HYDROXYCHLOROQUINE
     Indication: RHEUMATIC DISORDER
     Dosage: 200 MG, DAILY
     Route: 048
     Dates: start: 20160121, end: 20171105
  2. NITROFURANTOIN. [Concomitant]
     Active Substance: NITROFURANTOIN
     Indication: PROPHYLAXIS URINARY TRACT INFECTION
     Dosage: 50 MG, DAILY
     Route: 048
     Dates: start: 20160323, end: 20171105
  3. TOFACITINIB CITRATE [Suspect]
     Active Substance: TOFACITINIB CITRATE
     Indication: PSORIATIC ARTHROPATHY
     Dosage: 5 MG, 2X/DAY
     Route: 048
     Dates: start: 20160121, end: 20171105

REACTIONS (1)
  - Epiglottitis [Recovering/Resolving]

NARRATIVE: CASE EVENT DATE: 20171105
